FAERS Safety Report 5724395-1 (Version None)
Quarter: 2008Q2

REPORT INFORMATION
  Report Type: 
  Country: None (occurrence: None)
  Receive Date: 20080430
  Receipt Date: 20080423
  Transmission Date: 20081010
  Serious: Yes (Other)
  Sender: FDA-Public Use
  Company Number: US-PFIZER INC-2008036156

PATIENT
  Sex: Female
  Weight: 96.6 kg

DRUGS (2)
  1. PROVERA [Suspect]
     Indication: ENDOMETRIOSIS
     Route: 048
  2. SYNTHROID [Concomitant]

REACTIONS (1)
  - BREAST CANCER FEMALE [None]
